FAERS Safety Report 16652813 (Version 1)
Quarter: 2019Q3

REPORT INFORMATION
  Report Type: Spontaneous
  Country: US (occurrence: US)
  Receive Date: 20190731
  Receipt Date: 20190731
  Transmission Date: 20191004
  Serious: No
  Sender: FDA-Public Use
  Company Number: US-TEVA-2019-US-1044895

PATIENT
  Age: 28 Year
  Sex: Male

DRUGS (1)
  1. ALBUTEROL SULFATE HFA [Suspect]
     Active Substance: ALBUTEROL SULFATE
     Indication: ASTHMA
     Dosage: INHALATION AEROSOL; START DATE: 2 YEARS
     Route: 065

REACTIONS (2)
  - Dyspnoea [Unknown]
  - Product storage error [Unknown]

NARRATIVE: CASE EVENT DATE: 201904
